FAERS Safety Report 5386604-0 (Version None)
Quarter: 2007Q3

REPORT INFORMATION
  Report Type: 
  Country: None (occurrence: None)
  Receive Date: 20070713
  Receipt Date: 20070704
  Transmission Date: 20080115
  Serious: Yes (Hospitalization)
  Sender: FDA-Public Use
  Company Number: GB-AMGEN-US232253

PATIENT
  Sex: Male
  Weight: 46 kg

DRUGS (9)
  1. ENBREL [Suspect]
     Indication: RHEUMATOID ARTHRITIS
     Dosage: UNKNOWN
     Route: 058
     Dates: start: 20060701
  2. ASPIRIN [Concomitant]
     Route: 048
  3. FOLIC ACID [Concomitant]
     Dosage: UNKNOWN
  4. SIMVASTATIN [Concomitant]
     Dosage: UNKNOWN
     Dates: start: 19960101
  5. PERSANTIN [Concomitant]
     Dosage: UNKNOWN
  6. ADCAL D3 [Concomitant]
     Dosage: UNKNOWN
  7. RABEPRAZOLE SODIUM [Concomitant]
     Dosage: UNKNOWN
  8. METHOTREXATE [Concomitant]
  9. ALENDRONATE SODIUM [Concomitant]

REACTIONS (2)
  - CHOLECYSTITIS [None]
  - SEPSIS [None]
